FAERS Safety Report 11379747 (Version 1)
Quarter: 2015Q3

REPORT INFORMATION
  Report Type: Spontaneous
  Country: US (occurrence: None)
  Receive Date: 20150813
  Receipt Date: 20150813
  Transmission Date: 20151125
  Serious: Yes (Hospitalization)
  Sender: FDA-Public Use
  Company Number: None

PATIENT
  Age: 59 Year
  Sex: Female
  Weight: 52.16 kg

DRUGS (1)
  1. PRISTIQ EXTENDED RELEASE [Suspect]
     Active Substance: DESVENLAFAXINE SUCCINATE
     Indication: DEPRESSION
     Route: 048
     Dates: start: 20140701, end: 20150415

REACTIONS (16)
  - Lower respiratory tract infection [None]
  - Haemoptysis [None]
  - Skull fracture [None]
  - Glaucoma [None]
  - Hearing impaired [None]
  - Contusion [None]
  - Fall [None]
  - Spinal fracture [None]
  - Cough [None]
  - Bronchitis [None]
  - Serotonin syndrome [None]
  - Haemorrhage [None]
  - Epistaxis [None]
  - Eye haemorrhage [None]
  - Purpura [None]
  - Cerebral haemorrhage [None]

NARRATIVE: CASE EVENT DATE: 20150613
